FAERS Safety Report 18080189 (Version 3)
Quarter: 2020Q4

REPORT INFORMATION
  Report Type: Report from Study
  Country: BR (occurrence: BR)
  Receive Date: 20200728
  Receipt Date: 20201217
  Transmission Date: 20210113
  Serious: Yes (Other)
  Sender: FDA-Public Use
  Company Number: BR-JNJFOC-20200726074

PATIENT
  Sex: Female
  Weight: 64 kg

DRUGS (4)
  1. STELARA [Suspect]
     Active Substance: USTEKINUMAB
  2. RISPERIDONE. [Concomitant]
     Active Substance: RISPERIDONE
     Indication: DEPRESSION
  3. STELARA [Suspect]
     Active Substance: USTEKINUMAB
     Indication: PSORIASIS
     Route: 058
     Dates: start: 202001
  4. CLONAZEPAM. [Concomitant]
     Active Substance: CLONAZEPAM
     Indication: DEPRESSION

REACTIONS (4)
  - Emphysema [Unknown]
  - Migraine [Unknown]
  - Arthralgia [Unknown]
  - Pyrexia [Unknown]
